FAERS Safety Report 11331252 (Version 1)
Quarter: 2015Q3

REPORT INFORMATION
  Report Type: Spontaneous
  Country: CN (occurrence: CN)
  Receive Date: 20150803
  Receipt Date: 20150803
  Transmission Date: 20151125
  Serious: Yes (Hospitalization)
  Sender: FDA-Public Use
  Company Number: CN-ELI_LILLY_AND_COMPANY-CN201507008940

PATIENT
  Sex: Female
  Weight: 82 kg

DRUGS (2)
  1. GEMZAR [Suspect]
     Active Substance: GEMCITABINE HYDROCHLORIDE
     Indication: CHEMOTHERAPY
     Dosage: UNK, QD
     Route: 042
     Dates: start: 20150105
  2. NUO XIN [Concomitant]
     Indication: CHEMOTHERAPY
     Dosage: UNK, CYCLICAL
     Route: 042
     Dates: start: 20150105

REACTIONS (3)
  - Pain [Recovered/Resolved]
  - Off label use [Unknown]
  - Asthenia [Recovered/Resolved]
